FAERS Safety Report 8791309 (Version 1)
Quarter: 2012Q4

REPORT INFORMATION
  Report Type: Spontaneous
  Country: US (occurrence: None)
  Receive Date: 20120911
  Receipt Date: 20120911
  Transmission Date: 20130627
  Serious: Yes (Hospitalization)
  Sender: FDA-Public Use
  Company Number: AMAG201203091

PATIENT
  Age: 79 Year
  Sex: Female
  Weight: 56.25 kg

DRUGS (8)
  1. FERAHEME [Suspect]
     Indication: IRON DEFICIENCY ANAEMIA
     Dosage: 510 mg, single, intravenous
     Route: 042
     Dates: start: 20120731, end: 20120731
  2. FOLIC ACID (FOLIC ACID) [Concomitant]
  3. VITAMIN D2 (VITAMIN D2) [Concomitant]
  4. COZAAR (LOSARTAN POTASSIUM) [Concomitant]
  5. NORVASC (AMLODIPINE BESILATE) [Concomitant]
  6. ZOLOFT (SERTRALINE HYDROCHLORIDE) [Concomitant]
  7. CYTOMEL (LIOTHYRONINE SODIUM) [Concomitant]
  8. VITAMIN B12 (CYANOCOBALAMIN) [Concomitant]

REACTIONS (1)
  - Mental disorder [None]
